FAERS Safety Report 11075905 (Version 2)
Quarter: 2015Q4

REPORT INFORMATION
  Report Type: Spontaneous
  Country: FR (occurrence: FR)
  Receive Date: 20150429
  Receipt Date: 20151123
  Transmission Date: 20160304
  Serious: Yes (Hospitalization, Other)
  Sender: FDA-Public Use
  Company Number: FR-PFIZER INC-2015139687

PATIENT
  Age: 81 Year
  Sex: Female

DRUGS (2)
  1. RIFADINE /00146901/ [Suspect]
     Active Substance: RIFAMPIN
     Dosage: 600 MG, DAILY (2 X 300 MG CAPSULES DAILY)
     Route: 048
     Dates: start: 20150206, end: 20150213
  2. DALACINE [Suspect]
     Active Substance: CLINDAMYCIN HYDROCHLORIDE
     Dosage: 600 MG, 3X/DAY
     Route: 048
     Dates: start: 20150206, end: 20150212

REACTIONS (2)
  - Gastrointestinal disorder [Recovered/Resolved]
  - Clostridium difficile colitis [Recovered/Resolved]

NARRATIVE: CASE EVENT DATE: 20150212
